FAERS Safety Report 6558620-4 (Version None)
Quarter: 2010Q1

REPORT INFORMATION
  Report Type: 
  Country: None (occurrence: None)
  Receive Date: 20100129
  Receipt Date: 20100118
  Transmission Date: 20100710
  Serious: Yes (Hospitalization)
  Sender: FDA-Public Use
  Company Number: DE-PFIZER INC-2008058150

PATIENT
  Age: 56 Year
  Sex: Female
  Weight: 69 kg

DRUGS (2)
  1. SUNITINIB MALATE [Suspect]
     Indication: BREAST CANCER
     Dosage: 12.5 MG, UNK
     Route: 048
     Dates: start: 20080618
  2. DICLOFENAC [Concomitant]
     Route: 048

REACTIONS (1)
  - MALLORY-WEISS SYNDROME [None]
